FAERS Safety Report 25041823 (Version 6)
Quarter: 2025Q3

REPORT INFORMATION
  Report Type: Spontaneous
  Country: EU (occurrence: EU)
  Receive Date: 20250305
  Receipt Date: 20250703
  Transmission Date: 20251021
  Serious: No
  Sender: PFIZER
  Company Number: EU-PFIZER INC-PV202500024936

PATIENT
  Age: 5 Year
  Sex: Female
  Weight: 14 kg

DRUGS (1)
  1. GENOTROPIN [Suspect]
     Active Substance: SOMATROPIN
     Indication: Growth hormone deficiency
     Dosage: 0.6 MG, DAILY (0.6 MG X 6 DAYS, 1 DAY OFF)
     Route: 058
     Dates: start: 202412

REACTIONS (4)
  - Device use error [Unknown]
  - Device breakage [Unknown]
  - Device material issue [Unknown]
  - Wrong technique in device usage process [Unknown]

NARRATIVE: CASE EVENT DATE: 20250201
